FAERS Safety Report 23368670 (Version 4)
Quarter: 2024Q1

REPORT INFORMATION
  Report Type: Report from Study
  Country: CN (occurrence: CN)
  Receive Date: 20240105
  Receipt Date: 20240328
  Transmission Date: 20240409
  Serious: Yes (Other)
  Sender: FDA-Public Use
  Company Number: CN-009507513-2311CHN005587

PATIENT
  Age: 44 Year
  Sex: Male
  Weight: 77 kg

DRUGS (7)
  1. ERTUGLIFLOZIN [Suspect]
     Active Substance: ERTUGLIFLOZIN
     Indication: Type 2 diabetes mellitus
     Dosage: UNK
     Route: 048
     Dates: start: 20231022
  2. METFORMIN HYDROCHLORIDE [Concomitant]
     Active Substance: METFORMIN HYDROCHLORIDE
     Indication: Type 2 diabetes mellitus
     Dosage: UNK
     Dates: start: 20231022
  3. SEMAGLUTIDE [Concomitant]
     Active Substance: SEMAGLUTIDE
     Indication: Type 2 diabetes mellitus
     Dosage: UNK
     Dates: start: 20231022
  4. THIOCTIC ACID [Concomitant]
     Active Substance: THIOCTIC ACID
     Indication: Prophylaxis
     Dosage: UNK
     Dates: start: 20231022, end: 20231023
  5. HERBALS\DIAMMONIUM GLYCYRRHIZINATE [Concomitant]
     Active Substance: HERBALS\DIAMMONIUM GLYCYRRHIZINATE
     Indication: Hepatic steatosis
     Dosage: FORMULATION: ENTERIC-COATED CAPSULE
     Dates: start: 20231022, end: 20231030
  6. XUE ZHI KANG [Concomitant]
     Indication: Hypertriglyceridaemia
     Dosage: UNK
     Dates: start: 20231022
  7. PHOSPHOLIPID [Concomitant]
     Active Substance: PHOSPHOLIPID
     Indication: Hepatic steatosis
     Dosage: UNK
     Dates: start: 20231022

REACTIONS (4)
  - Diabetic ketosis [Recovered/Resolved]
  - Hunger [Unknown]
  - Protein urine present [Recovered/Resolved]
  - Urinary occult blood positive [Not Recovered/Not Resolved]

NARRATIVE: CASE EVENT DATE: 20230101
